FAERS Safety Report 9213353 (Version 1)
Quarter: 2013Q2

REPORT INFORMATION
  Report Type: Spontaneous
  Country: US (occurrence: None)
  Receive Date: 20130405
  Receipt Date: 20130405
  Transmission Date: 20140414
  Serious: Yes (Hospitalization)
  Sender: FDA-Public Use
  Company Number: None

PATIENT
  Age: 89 Year
  Sex: Male
  Weight: 76.8 kg

DRUGS (1)
  1. WARFARIN [Suspect]
     Route: 048

REACTIONS (7)
  - International normalised ratio increased [None]
  - Pneumonia [None]
  - Weight decreased [None]
  - Renal failure acute [None]
  - Treatment noncompliance [None]
  - Hypovolaemia [None]
  - Decreased appetite [None]
